FAERS Safety Report 9668188 (Version 1)
Quarter: 2013Q4

REPORT INFORMATION
  Report Type: Spontaneous
  Country: ES (occurrence: None)
  Receive Date: 20131101
  Receipt Date: 20131101
  Transmission Date: 20140711
  Serious: Yes (Death)
  Sender: FDA-Public Use
  Company Number: 2013P1020418

PATIENT
  Age: 90 Year
  Sex: Female

DRUGS (2)
  1. RISPERIDONE [Suspect]
     Indication: HALLUCINATION, VISUAL
  2. FUROSEMIDE [Suspect]
     Indication: ACUTE PULMONARY OEDEMA

REACTIONS (4)
  - Pemphigoid [None]
  - Ulcer [None]
  - Skin lesion [None]
  - Sepsis [None]
